FAERS Safety Report 9834395 (Version 1)
Quarter: 2014Q1

REPORT INFORMATION
  Report Type: Spontaneous
  Country: US (occurrence: US)
  Receive Date: 20140122
  Receipt Date: 20140122
  Transmission Date: 20141002
  Serious: Yes (Disabling, Other)
  Sender: FDA-Public Use
  Company Number: US-GE HEALTHCARE MEDICAL DIAGNOSTICS-OSCN-PR-0811S-0632

PATIENT
  Age: 56 Year
  Sex: Male

DRUGS (4)
  1. OMNISCAN [Suspect]
     Indication: PRODUCT USED FOR UNKNOWN INDICATION
     Route: 042
     Dates: start: 20041123, end: 20041123
  2. OMNISCAN [Suspect]
     Route: 042
     Dates: start: 20050518, end: 20050518
  3. OMNISCAN [Suspect]
     Route: 042
     Dates: start: 20051012, end: 20051012
  4. GADOLINIUM (UNSPECIFIED) [Suspect]
     Indication: PRODUCT USED FOR UNKNOWN INDICATION
     Route: 042
     Dates: start: 20040927, end: 20040927

REACTIONS (1)
  - Nephrogenic systemic fibrosis [Not Recovered/Not Resolved]
